FAERS Safety Report 5322066-7 (Version None)
Quarter: 2007Q2

REPORT INFORMATION
  Report Type: 
  Country: None (occurrence: None)
  Receive Date: 20070507
  Receipt Date: 20070418
  Transmission Date: 20071010
  Serious: No
  Sender: FDA-Public Use
  Company Number: PHBS2007CA05042

PATIENT
  Sex: Male

DRUGS (1)
  1. LIORESAL [Suspect]
     Indication: MUSCLE SPASTICITY
     Dosage: 1400 MCG/DAY
     Route: 037

REACTIONS (5)
  - CATHETER RELATED COMPLICATION [None]
  - DRUG WITHDRAWAL SYNDROME [None]
  - GRANULOMA [None]
  - INFUSION SITE MASS [None]
  - INTRACRANIAL HYPOTENSION [None]
